FAERS Safety Report 11341051 (Version 3)
Quarter: 2015Q4

REPORT INFORMATION
  Report Type: Spontaneous
  Country: US (occurrence: US)
  Receive Date: 20150805
  Receipt Date: 20151214
  Transmission Date: 20160304
  Serious: Yes (Hospitalization, Other)
  Sender: FDA-Public Use
  Company Number: US-JNJFOC-20150720029

PATIENT
  Age: 88 Year
  Sex: Female
  Weight: 61.24 kg

DRUGS (6)
  1. ATENOLOL. [Concomitant]
     Active Substance: ATENOLOL
     Indication: HYPERTENSION
     Route: 065
     Dates: start: 2014
  2. XARELTO [Suspect]
     Active Substance: RIVAROXABAN
     Indication: CEREBROVASCULAR ACCIDENT PROPHYLAXIS
     Route: 048
     Dates: start: 201411, end: 20150726
  3. SIMVASTATIN. [Concomitant]
     Active Substance: SIMVASTATIN
     Indication: BLOOD CHOLESTEROL
     Route: 065
  4. AMLODIPINE [Concomitant]
     Active Substance: AMLODIPINE BESYLATE
     Indication: HYPERTENSION
     Route: 065
  5. CALCIUM [Concomitant]
     Active Substance: CALCIUM
     Route: 065
  6. FISH OIL [Concomitant]
     Active Substance: FISH OIL
     Route: 065

REACTIONS (4)
  - Haematoma [Recovering/Resolving]
  - Treatment noncompliance [Unknown]
  - Gait disturbance [Not Recovered/Not Resolved]
  - Increased tendency to bruise [Unknown]

NARRATIVE: CASE EVENT DATE: 20150715
